FAERS Safety Report 8508176-1 (Version None)
Quarter: 2012Q3

REPORT INFORMATION
  Report Type: 
  Country: None (occurrence: None)
  Receive Date: 20120713
  Receipt Date: 20120710
  Transmission Date: 20120928
  Serious: Yes (Other)
  Sender: FDA-Public Use
  Company Number: US-PFIZER INC-2012165735

PATIENT
  Sex: Female
  Weight: 83.9 kg

DRUGS (1)
  1. LYRICA [Suspect]
     Indication: FIBROMYALGIA
     Dosage: 50 MG, 1X/DAY
     Route: 048

REACTIONS (3)
  - CARPAL TUNNEL SYNDROME [None]
  - INTERVERTEBRAL DISC DEGENERATION [None]
  - TREMOR [None]
